FAERS Safety Report 18727649 (Version 2)
Quarter: 2021Q1

REPORT INFORMATION
  Report Type: Spontaneous
  Country: US (occurrence: US)
  Receive Date: 20210112
  Receipt Date: 20210216
  Transmission Date: 20210419
  Serious: Yes (Other)
  Sender: FDA-Public Use
  Company Number: US-GILEAD-2021-0512072

PATIENT
  Age: 50 Year
  Sex: Male

DRUGS (2)
  1. TRUVADA [Suspect]
     Active Substance: EMTRICITABINE\TENOFOVIR DISOPROXIL FUMARATE
     Indication: HIV INFECTION
     Dosage: UNK
     Route: 048
     Dates: start: 20090216, end: 20180306
  2. BIKTARVY [Concomitant]
     Active Substance: BICTEGRAVIR SODIUM\EMTRICITABINE\TENOFOVIR ALAFENAMIDE FUMARATE
     Indication: HIV INFECTION
     Dosage: UNK

REACTIONS (6)
  - Osteonecrosis [Unknown]
  - Hip fracture [Not Recovered/Not Resolved]
  - Bone loss [Unknown]
  - Multiple fractures [Unknown]
  - Bone density decreased [Unknown]
  - Hip fracture [Not Recovered/Not Resolved]

NARRATIVE: CASE EVENT DATE: 20120802
